FAERS Safety Report 8988820 (Version 2)
Quarter: 2013Q1

REPORT INFORMATION
  Report Type: Spontaneous
  Country: US (occurrence: US)
  Receive Date: 20121228
  Receipt Date: 20130110
  Transmission Date: 20140127
  Serious: Yes (Death, Hospitalization)
  Sender: FDA-Public Use
  Company Number: US-B.I. PHARMACEUTICALS,INC./RIDGEFIELD-2012-BI-04018BP

PATIENT
  Age: 87 Year
  Sex: Female

DRUGS (3)
  1. SPIRIVA [Suspect]
     Indication: CHRONIC OBSTRUCTIVE PULMONARY DISEASE
     Dosage: 18 MCG
     Route: 055
     Dates: start: 2004, end: 20121122
  2. HYDROCHLOROTHIAZIDE [Concomitant]
  3. ASPIRIN [Concomitant]

REACTIONS (1)
  - Respiratory failure [Fatal]
